FAERS Safety Report 21361114 (Version 2)
Quarter: 2022Q3

REPORT INFORMATION
  Report Type: Report from Study
  Country: US (occurrence: US)
  Receive Date: 20220921
  Receipt Date: 20220926
  Transmission Date: 20221027
  Serious: Yes (Hospitalization)
  Sender: FDA-Public Use
  Company Number: US-ABBVIE-22K-163-4497874-00

PATIENT
  Sex: Male

DRUGS (1)
  1. VENCLEXTA [Suspect]
     Active Substance: VENETOCLAX
     Indication: Myeloid leukaemia
     Dosage: TAKE WITH A MEAL AND WATER AT SAME TIME EACH DAY
     Route: 048

REACTIONS (3)
  - Leukaemia [Unknown]
  - Off label use [Unknown]
  - Rash [Unknown]
